FAERS Safety Report 17266060 (Version 1)
Quarter: 2020Q1

REPORT INFORMATION
  Report Type: Spontaneous
  Country: US (occurrence: US)
  Receive Date: 20200114
  Receipt Date: 20200114
  Transmission Date: 20200409
  Serious: Yes (Other)
  Sender: FDA-Public Use
  Company Number: US-LUPIN PHARMACEUTICALS INC.-2020-00021

PATIENT
  Age: 59 Year
  Sex: Female

DRUGS (3)
  1. LEVETIRACETAM. [Suspect]
     Active Substance: LEVETIRACETAM
     Indication: CREUTZFELDT-JAKOB DISEASE
     Dosage: UNK
     Route: 042
  2. VALPROATE [Concomitant]
     Active Substance: VALPROIC ACID
     Indication: CREUTZFELDT-JAKOB DISEASE
     Dosage: UNK
     Route: 065
  3. PHENYTOIN SODIUM. [Suspect]
     Active Substance: PHENYTOIN SODIUM
     Indication: CREUTZFELDT-JAKOB DISEASE
     Dosage: UNK
     Route: 042

REACTIONS (2)
  - Seizure [Unknown]
  - Myoclonus [Unknown]
